FAERS Safety Report 15574890 (Version 1)
Quarter: 2018Q4

REPORT INFORMATION
  Report Type: Spontaneous
  Country: US (occurrence: US)
  Receive Date: 20181101
  Receipt Date: 20181101
  Transmission Date: 20190205
  Serious: No
  Sender: FDA-Public Use
  Company Number: US-SA-2018SA300894

PATIENT
  Age: 73 Year
  Sex: Female

DRUGS (1)
  1. LANTUS SOLOSTAR [Suspect]
     Active Substance: INSULIN GLARGINE
     Indication: TYPE 2 DIABETES MELLITUS
     Dosage: 32 U QAM + 280U QHS
     Dates: start: 2017

REACTIONS (4)
  - Product use issue [Unknown]
  - Device operational issue [Unknown]
  - Device leakage [Unknown]
  - Intentional dose omission [Unknown]
